FAERS Safety Report 24029831 (Version 1)
Quarter: 2024Q2

REPORT INFORMATION
  Report Type: Spontaneous
  Country: US (occurrence: None)
  Receive Date: 20240628
  Receipt Date: 20240628
  Transmission Date: 20240716
  Serious: No
  Sender: FDA-Public Use
  Company Number: None

PATIENT

DRUGS (1)
  1. CHLORAPREP [Suspect]
     Active Substance: CHLORHEXIDINE GLUCONATE\ISOPROPYL ALCOHOL

REACTIONS (14)
  - Dialysis [None]
  - Catheter site related reaction [None]
  - Hypertension [None]
  - Pyrexia [None]
  - Haematological infection [None]
  - Streptococcal bacteraemia [None]
  - Dyspnoea [None]
  - Pruritus [None]
  - Swelling face [None]
  - Suprapubic pain [None]
  - Catheter site thrombosis [None]
  - Hypervolaemia [None]
  - Azotaemia [None]
  - Hypersensitivity [None]
